FAERS Safety Report 5783921-7 (Version None)
Quarter: 2008Q2

REPORT INFORMATION
  Report Type: 
  Country: None (occurrence: None)
  Receive Date: 20080605
  Receipt Date: 20080326
  Transmission Date: 20081010
  Serious: No
  Sender: FDA-Public Use
  Company Number: A0717574A

PATIENT
  Age: 49 Year
  Sex: Female
  Weight: 69 kg

DRUGS (3)
  1. ALLI [Suspect]
     Dates: end: 20080324
  2. FLAX SEED OIL [Concomitant]
  3. MULTI-VITAMIN [Concomitant]

REACTIONS (3)
  - ABDOMINAL PAIN UPPER [None]
  - CONSTIPATION [None]
  - FLATULENCE [None]
